FAERS Safety Report 21204223 (Version 1)
Quarter: 2022Q3

REPORT INFORMATION
  Report Type: Report from Study
  Country: IN (occurrence: IN)
  Receive Date: 20220812
  Receipt Date: 20220812
  Transmission Date: 20221026
  Serious: Yes (Death)
  Sender: FDA-Public Use
  Company Number: IN-002147023-NVSC2021IN293194

PATIENT
  Age: 62 Year
  Sex: Female

DRUGS (8)
  1. ERENUMAB [Suspect]
     Active Substance: ERENUMAB
     Indication: Migraine prophylaxis
     Dosage: 70 MILLIGRAM, QMO
     Route: 058
     Dates: start: 20210809
  2. ERENUMAB [Suspect]
     Active Substance: ERENUMAB
     Dosage: 140 MILLIGRAM, QMO
     Route: 058
     Dates: start: 20210809
  3. ERENUMAB [Suspect]
     Active Substance: ERENUMAB
     Dosage: UNK (SECOND DOSE)
     Route: 058
     Dates: start: 20210908
  4. ERENUMAB [Suspect]
     Active Substance: ERENUMAB
     Dosage: UNK (THIRD DOSE)
     Route: 058
     Dates: start: 20211008
  5. ERENUMAB [Suspect]
     Active Substance: ERENUMAB
     Dosage: UNK (FOURTH DOSE)
     Route: 058
     Dates: start: 20211116
  6. ERENUMAB [Suspect]
     Active Substance: ERENUMAB
     Dosage: UNK (FIFTH DOSE)
     Route: 058
     Dates: start: 20220112
  7. ERENUMAB [Suspect]
     Active Substance: ERENUMAB
     Dosage: UNK (SIXTH DOSE)
     Route: 058
     Dates: start: 20220212
  8. ERENUMAB [Suspect]
     Active Substance: ERENUMAB
     Dosage: UNK (SEVENTH DOSE)
     Route: 058
     Dates: start: 20220510

REACTIONS (5)
  - Death [Fatal]
  - Pyrexia [Unknown]
  - Therapeutic product effect incomplete [Unknown]
  - Headache [Not Recovered/Not Resolved]
  - Inappropriate schedule of product administration [Unknown]

NARRATIVE: CASE EVENT DATE: 20211213
